FAERS Safety Report 4565111-9 (Version None)
Quarter: 2005Q1

REPORT INFORMATION
  Report Type: 
  Country: None (occurrence: None)
  Receive Date: 20050131
  Receipt Date: 20050125
  Transmission Date: 20050727
  Serious: Yes (Life-Threatening, Hospitalization)
  Sender: FDA-Public Use
  Company Number: PHBS2005FR01357

PATIENT
  Age: 27 Year
  Sex: Female

DRUGS (2)
  1. ENOXAPARIN SODIUM [Concomitant]
     Dosage: 20 MG/DAY
  2. PARLODEL [Suspect]
     Indication: SUPPRESSED LACTATION
     Dosage: 2.5 MG/DAY

REACTIONS (21)
  - ABDOMINAL PAIN [None]
  - ANTIPHOSPHOLIPID ANTIBODIES POSITIVE [None]
  - ARTERIAL THROMBOSIS LIMB [None]
  - BLOOD FIBRINOGEN INCREASED [None]
  - CAROTID ARTERY THROMBOSIS [None]
  - CHEST PAIN [None]
  - DYSPNOEA [None]
  - ELECTROCARDIOGRAM ST SEGMENT ELEVATION [None]
  - ELECTROCARDIOGRAM T WAVE INVERSION [None]
  - FIBRIN D DIMER INCREASED [None]
  - INTERMITTENT CLAUDICATION [None]
  - INTRACARDIAC THROMBUS [None]
  - MUSCLE SPASMS [None]
  - MYOCARDIAL INFARCTION [None]
  - PAIN IN EXTREMITY [None]
  - RENAL INFARCT [None]
  - SPLENIC INFARCTION [None]
  - THROMBOSIS [None]
  - TROPONIN INCREASED [None]
  - VISUAL FIELD DEFECT [None]
  - WHITE BLOOD CELL COUNT INCREASED [None]
